FAERS Safety Report 20949145 (Version 3)
Quarter: 2022Q3

REPORT INFORMATION
  Report Type: Spontaneous
  Country: JP (occurrence: JP)
  Receive Date: 20220613
  Receipt Date: 20220727
  Transmission Date: 20221026
  Serious: Yes (Other)
  Sender: FDA-Public Use
  Company Number: JP-NOVARTISPH-NVSJ2022JP091956

PATIENT
  Age: 16 Year
  Sex: Female
  Weight: 46 kg

DRUGS (1)
  1. KESIMPTA [Suspect]
     Active Substance: OFATUMUMAB
     Indication: Relapsing-remitting multiple sclerosis
     Dosage: UNK
     Route: 058

REACTIONS (4)
  - Multiple sclerosis relapse [Unknown]
  - Paraesthesia [Unknown]
  - Adjustment disorder with depressed mood [Unknown]
  - Off label use [Unknown]
